FAERS Safety Report 18110607 (Version 4)
Quarter: 2024Q1

REPORT INFORMATION
  Report Type: Other
  Country: US (occurrence: None)
  Receive Date: 20200804
  Receipt Date: 20240131
  Transmission Date: 20240410
  Serious: Yes (Other)
  Sender: FDA-Public Use
  Company Number: US-ROCHE-2534743

PATIENT

DRUGS (13)
  1. TRASTUZUMAB [Suspect]
     Active Substance: TRASTUZUMAB
     Indication: HER2 positive breast cancer
     Dosage: DAY 1 OF 21 DAY CYCLE
     Route: 042
  2. TRASTUZUMAB [Suspect]
     Active Substance: TRASTUZUMAB
     Dosage: MAINTENANCE DOSE IV INFUSION ON DAY 1 OF EACH SUBSEQUENT 21-DAY CYCLE
     Route: 042
  3. ABEMACICLIB [Suspect]
     Active Substance: ABEMACICLIB
     Indication: HER2 positive breast cancer
     Dosage: DAYS 1-21 OF A 21 DAY CYCLE
     Route: 048
  4. FULVESTRANT [Suspect]
     Active Substance: FULVESTRANT
     Indication: HER2 positive breast cancer
     Dosage: CYCLE 1 DAY 1 AND DAY 15, 29 AND CYCLE 2 DAY 8, THEN EVERY 4 WEEK
     Route: 030
  5. FULVESTRANT [Suspect]
     Active Substance: FULVESTRANT
     Route: 065
  6. VINORELBINE [Suspect]
     Active Substance: VINORELBINE TARTRATE
     Indication: HER2 positive breast cancer
     Route: 065
  7. CAPECITABINE [Suspect]
     Active Substance: CAPECITABINE
     Indication: HER2 positive breast cancer
     Route: 048
  8. ERIBULIN [Suspect]
     Active Substance: ERIBULIN
     Indication: HER2 positive breast cancer
     Route: 065
  9. GEMCITABINE [Suspect]
     Active Substance: GEMCITABINE
     Indication: HER2 positive breast cancer
     Route: 065
  10. PACLITAXEL [Suspect]
     Active Substance: PACLITAXEL
     Indication: HER2 positive breast cancer
     Route: 065
  11. CARBOPLATIN [Suspect]
     Active Substance: CARBOPLATIN
     Indication: HER2 positive breast cancer
     Route: 065
  12. CYCLOPHOSPHAMIDE [Suspect]
     Active Substance: CYCLOPHOSPHAMIDE
     Indication: HER2 positive breast cancer
     Route: 065
  13. LAPATINIB [Suspect]
     Active Substance: LAPATINIB
     Indication: HER2 positive breast cancer
     Route: 065

REACTIONS (33)
  - Neutropenia [Unknown]
  - Leukopenia [Unknown]
  - Thrombocytopenia [Unknown]
  - Diarrhoea [Unknown]
  - Pyrexia [Unknown]
  - Urinary tract infection [Unknown]
  - Acute kidney injury [Unknown]
  - Pneumonitis [Unknown]
  - Cardiac failure [Unknown]
  - Hepatotoxicity [Unknown]
  - Interstitial lung disease [Unknown]
  - Pleural effusion [Unknown]
  - Fatigue [Unknown]
  - Nausea [Unknown]
  - Abdominal pain [Unknown]
  - Decreased appetite [Unknown]
  - Headache [Unknown]
  - Dyspnoea [Unknown]
  - Aspartate aminotransferase increased [Unknown]
  - Arthralgia [Unknown]
  - Embolism venous [Unknown]
  - Neutrophil count decreased [Unknown]
  - Anaemia [Unknown]
  - Vomiting [Unknown]
  - Cough [Unknown]
  - Constipation [Unknown]
  - Pruritus [Unknown]
  - Upper respiratory tract infection [Unknown]
  - Platelet count decreased [Unknown]
  - White blood cell count decreased [Unknown]
  - Stomatitis [Unknown]
  - Myalgia [Unknown]
  - Pain [Unknown]
